FAERS Safety Report 4725552-3 (Version None)
Quarter: 2005Q3

REPORT INFORMATION
  Report Type: 
  Country: None (occurrence: None)
  Receive Date: 20050727
  Receipt Date: 20050715
  Transmission Date: 20060218
  Serious: Yes (Hospitalization)
  Sender: FDA-Public Use
  Company Number: NL-BOEHRINGER INGELHEIM PHARMACEUTICALS, INC.-2005-NL-00200NL

PATIENT
  Sex: Male
  Weight: 53 kg

DRUGS (1)
  1. TIPRANAVIR + RITONAVIR CO-ADMIN [Suspect]
     Indication: HIV INFECTION
     Route: 048
     Dates: start: 20031103

REACTIONS (1)
  - GALLBLADDER POLYP [None]
